FAERS Safety Report 6908383-5 (Version None)
Quarter: 2010Q3

REPORT INFORMATION
  Report Type: 
  Country: None (occurrence: None)
  Receive Date: 20100708
  Receipt Date: 20090421
  Transmission Date: 20110219
  Serious: Yes (Other)
  Sender: FDA-Public Use
  Company Number: 2009195325

PATIENT
  Age: 57 Year
  Sex: Male
  Weight: 106.6 kg

DRUGS (1)
  1. CHANTIX [Suspect]
     Dates: start: 20090315, end: 20090325

REACTIONS (6)
  - DEPRESSED MOOD [None]
  - FEELING ABNORMAL [None]
  - METAMORPHOPSIA [None]
  - VISION BLURRED [None]
  - VISUAL FIELD DEFECT [None]
  - VISUAL IMPAIRMENT [None]
